FAERS Safety Report 4893180-5 (Version None)
Quarter: 2005Q4

REPORT INFORMATION
  Report Type: 
  Country: None (occurrence: None)
  Receive Date: 20051223
  Receipt Date: 20050909
  Transmission Date: 20060501
  Serious: No
  Sender: FDA-Public Use
  Company Number: 2005PV001924

PATIENT
  Age: 67 Year
  Sex: Female
  Weight: 108.8633 kg

DRUGS (4)
  1. SYMLIN [Suspect]
     Indication: DIABETES MELLITUS NON-INSULIN-DEPENDENT
     Dosage: SEE IMAGE
     Route: 058
     Dates: start: 20050909, end: 20050909
  2. SYMLIN [Suspect]
     Indication: DIABETES MELLITUS NON-INSULIN-DEPENDENT
     Dosage: SEE IMAGE
     Route: 058
     Dates: start: 20050826
  3. NOVALOG [Concomitant]
  4. LANTUS [Concomitant]

REACTIONS (7)
  - ACCIDENTAL OVERDOSE [None]
  - BLOOD GLUCOSE INCREASED [None]
  - INJECTION SITE NODULE [None]
  - INJECTION SITE PAIN [None]
  - MEDICATION ERROR [None]
  - NERVOUSNESS [None]
  - WRONG DRUG ADMINISTERED [None]
